FAERS Safety Report 20151352 (Version 1)
Quarter: 2021Q4

REPORT INFORMATION
  Report Type: Spontaneous
  Country: US (occurrence: None)
  Receive Date: 20211203
  Receipt Date: 20211203
  Transmission Date: 20220303
  Serious: No
  Sender: FDA-Public Use
  Company Number: None

PATIENT
  Age: 59 Year
  Sex: Female
  Weight: 65.25 kg

DRUGS (8)
  1. CLONIDINE [Suspect]
     Active Substance: CLONIDINE
     Indication: Blood pressure systolic increased
     Dosage: FREQUENCY : AS NEEDED;?
     Route: 048
     Dates: start: 20211001, end: 20211016
  2. LISINOPRIL [Concomitant]
     Active Substance: LISINOPRIL
  3. GLYBURIDE [Concomitant]
     Active Substance: GLYBURIDE
  4. ASPIRIN [Concomitant]
     Active Substance: ASPIRIN
  5. PRIMROSE [Concomitant]
  6. MAGNESIUM [Concomitant]
     Active Substance: MAGNESIUM
  7. VITAMIN D3 [Concomitant]
     Active Substance: CHOLECALCIFEROL
  8. VITAMIN E [Concomitant]
     Active Substance: .ALPHA.-TOCOPHEROL

REACTIONS (12)
  - Somnolence [None]
  - Somnolence [None]
  - Speech disorder [None]
  - Decreased activity [None]
  - Panic reaction [None]
  - Loss of consciousness [None]
  - Coordination abnormal [None]
  - Feeling abnormal [None]
  - Mental impairment [None]
  - Anxiety [None]
  - Heart rate increased [None]
  - Fear [None]

NARRATIVE: CASE EVENT DATE: 20211016
